FAERS Safety Report 10022967 (Version 1)
Quarter: 2014Q1

REPORT INFORMATION
  Report Type: Spontaneous
  Country: US (occurrence: US)
  Receive Date: 20140319
  Receipt Date: 20140319
  Transmission Date: 20141002
  Serious: No
  Sender: FDA-Public Use
  Company Number: US-009507513-1403USA005202

PATIENT
  Age: 49 Year
  Sex: Male

DRUGS (5)
  1. PEGINTRON [Suspect]
     Indication: HEPATITIS C
     Dosage: REDIPEN 5 ML ONCE A WEEK
     Dates: start: 20140228
  2. REBETOL [Suspect]
     Indication: HEPATITIS C
     Dosage: 3 IN AM 2 IN PM
     Route: 048
     Dates: start: 20140228
  3. SOVALDI [Concomitant]
     Dosage: 400 MG, ONE DAILY
  4. SEROQUEL [Concomitant]
     Dosage: 300 MG, ONE DAILY
  5. ZOLOFT [Concomitant]
     Dosage: 50 MG, ONE DAILY

REACTIONS (3)
  - Injection site reaction [Unknown]
  - Injection site erythema [Unknown]
  - Injection site pruritus [Unknown]
